FAERS Safety Report 5492190-7 (Version None)
Quarter: 2007Q4

REPORT INFORMATION
  Report Type: 
  Country: None (occurrence: None)
  Receive Date: 20071015
  Receipt Date: 20070111
  Transmission Date: 20080405
  Serious: Yes (Hospitalization)
  Sender: FDA-Public Use
  Company Number: 2007-10349

PATIENT
  Sex: Female

DRUGS (2)
  1. ULTRACET [Suspect]
     Indication: PAIN
     Dosage: ORAL
     Route: 048
     Dates: start: 20061201
  2. MORPHINE [Concomitant]

REACTIONS (1)
  - ANAPHYLACTOID SHOCK [None]
